FAERS Safety Report 5382351-X (Version None)
Quarter: 2007Q3

REPORT INFORMATION
  Report Type: 
  Country: None (occurrence: None)
  Receive Date: 20070709
  Receipt Date: 20070628
  Transmission Date: 20080115
  Serious: Yes (Other)
  Sender: FDA-Public Use
  Company Number: US-SHR-US-2007-023117

PATIENT
  Age: 41 Year
  Sex: Female
  Weight: 91 kg

DRUGS (11)
  1. LEUKINE [Suspect]
     Indication: COLONY STIMULATING FACTOR THERAPY
     Dosage: 390 MCG/D X10 DAYS AFTER CHEMO
     Route: 058
     Dates: start: 20070501, end: 20070618
  2. ZOCOR [Concomitant]
     Dosage: 40 MG, 1X/DAY
     Route: 048
  3. EFFEXOR [Concomitant]
     Dosage: 75 MG, 1X/DAY
     Route: 048
  4. TRIAMTERENE AND HYDROCHLOROTHIAZIDE [Concomitant]
     Dosage: 37.5/25 1XDAY
     Route: 048
  5. CYCLOPHOSPHAMIDE [Concomitant]
     Indication: BREAST CANCER FEMALE
     Dosage: 936 MG EVERY 3 WEEKS
     Route: 042
  6. DOXORUBICIN HCL [Concomitant]
     Indication: BREAST CANCER FEMALE
     Dosage: 94MG EVERY 3 WEEKS
     Route: 042
  7. ALEXITOL SODIUM [Concomitant]
     Indication: PREMEDICATION
     Dosage: 0.25 MG PRIOR TO CHEMO
     Route: 042
  8. DECADRON                                /CAN/ [Concomitant]
     Indication: PREMEDICATION
     Dosage: 4MG PRIOR TO CHEMO
     Route: 042
  9. EMEND [Concomitant]
     Route: 048
  10. REGLAN [Concomitant]
     Dosage: 40MG 2XD X5D AFTER CHEMO
     Route: 048
  11. ATIVAN [Concomitant]
     Dosage: 0.5MG2XD X5DAFTER CHEMO
     Route: 048

REACTIONS (9)
  - CONVULSION [None]
  - FEELING HOT [None]
  - HYPERHIDROSIS [None]
  - HYPOTENSION [None]
  - LETHARGY [None]
  - LOSS OF CONSCIOUSNESS [None]
  - MALAISE [None]
  - NAUSEA [None]
  - VOMITING [None]
